FAERS Safety Report 4555561-9 (Version None)
Quarter: 2005Q1

REPORT INFORMATION
  Report Type: 
  Country: None (occurrence: None)
  Receive Date: 20050118
  Receipt Date: 20050118
  Transmission Date: 20050727
  Serious: No
  Sender: FDA-Public Use
  Company Number: None

PATIENT

DRUGS (1)
  1. NORMAL SALINE I.V. FLUSH SYRINGE [Suspect]
     Dosage: INTRAVENOUS 10 MLS
     Route: 042

REACTIONS (2)
  - DYSGEUSIA [None]
  - INFUSION RELATED REACTION [None]
